FAERS Safety Report 13410734 (Version 2)
Quarter: 2018Q1

REPORT INFORMATION
  Report Type: Spontaneous
  Country: US (occurrence: US)
  Receive Date: 20170406
  Receipt Date: 20180118
  Transmission Date: 20180508
  Serious: No
  Sender: FDA-Public Use
  Company Number: US-JNJFOC-20170300635

PATIENT
  Age: 7 Year
  Sex: Male

DRUGS (8)
  1. RISPERDAL [Suspect]
     Active Substance: RISPERIDONE
     Indication: ATTENTION DEFICIT/HYPERACTIVITY DISORDER
     Route: 048
     Dates: end: 20110823
  2. RISPERDAL [Suspect]
     Active Substance: RISPERIDONE
     Indication: OPPOSITIONAL DEFIANT DISORDER
     Dosage: 0.25MG,0.5MG BID,0.5MG BID PRN,0.5MG QD,0.5MG ? BID, 0.5MG ? TID, 1MG ? BID,1MG QHS,1MG?TID
     Route: 048
     Dates: start: 20050221, end: 2010
  3. RISPERDAL [Suspect]
     Active Substance: RISPERIDONE
     Indication: OPPOSITIONAL DEFIANT DISORDER
     Dosage: 0.25MG,0.5MG BID,0.5MG BID PRN,0.5MG QD,0.5MG ? BID, 0.5MG ? TID, 1MG ? BID,1MG QHS,1MG?TID
     Route: 048
     Dates: end: 20110225
  4. RISPERIDONE. [Suspect]
     Active Substance: RISPERIDONE
     Indication: OPPOSITIONAL DEFIANT DISORDER
     Dosage: 0.5 MG QD, 0.5 MG QAM, 0.5 MG BID, 1 MG QHS
     Route: 048
     Dates: start: 20090127, end: 20111014
  5. RISPERIDONE. [Suspect]
     Active Substance: RISPERIDONE
     Indication: ATTENTION DEFICIT/HYPERACTIVITY DISORDER
     Dosage: 0.5 MG QD, 0.5 MG QAM, 0.5 MG BID, 1 MG QHS
     Route: 048
     Dates: start: 20090127, end: 20111014
  6. RISPERDAL [Suspect]
     Active Substance: RISPERIDONE
     Indication: OPPOSITIONAL DEFIANT DISORDER
     Route: 048
     Dates: end: 20110823
  7. RISPERDAL [Suspect]
     Active Substance: RISPERIDONE
     Indication: ATTENTION DEFICIT/HYPERACTIVITY DISORDER
     Dosage: 0.25MG,0.5MG BID,0.5MG BID PRN,0.5MG QD,0.5MG ? BID, 0.5MG ? TID, 1MG ? BID,1MG QHS,1MG?TID
     Route: 048
     Dates: end: 20110225
  8. RISPERDAL [Suspect]
     Active Substance: RISPERIDONE
     Indication: ATTENTION DEFICIT/HYPERACTIVITY DISORDER
     Dosage: 0.25MG,0.5MG BID,0.5MG BID PRN,0.5MG QD,0.5MG ? BID, 0.5MG ? TID, 1MG ? BID,1MG QHS,1MG?TID
     Route: 048
     Dates: start: 20050221, end: 2010

REACTIONS (6)
  - Off label use [Unknown]
  - Product use in unapproved indication [Unknown]
  - Decreased appetite [Unknown]
  - Treatment noncompliance [Unknown]
  - Gynaecomastia [Unknown]
  - Emotional disorder [Unknown]

NARRATIVE: CASE EVENT DATE: 20050221
